FAERS Safety Report 8358085-6 (Version None)
Quarter: 2012Q2

REPORT INFORMATION
  Report Type: 
  Country: None (occurrence: None)
  Receive Date: 20120514
  Receipt Date: 20120507
  Transmission Date: 20120825
  Serious: Yes (Hospitalization)
  Sender: FDA-Public Use
  Company Number: IT-BAYER-2012-044550

PATIENT
  Age: 55 Year
  Sex: Male

DRUGS (3)
  1. TEGRETOL [Concomitant]
  2. ASPIRIN [Suspect]
     Indication: HEADACHE
     Dosage: 1 DF, ONCE
     Route: 048
     Dates: start: 20120427, end: 20120427
  3. FOSTER [Concomitant]

REACTIONS (2)
  - URTICARIA [None]
  - MALAISE [None]
